FAERS Safety Report 10311191 (Version 1)
Quarter: 2014Q3

REPORT INFORMATION
  Report Type: Spontaneous
  Country: FR (occurrence: FR)
  Receive Date: 20140717
  Receipt Date: 20140717
  Transmission Date: 20150326
  Serious: Yes (Death)
  Sender: FDA-Public Use
  Company Number: PHHY2014FR087356

PATIENT
  Sex: Male

DRUGS (2)
  1. TRILEPTAL [Suspect]
     Active Substance: OXCARBAZEPINE
     Indication: OFF LABEL USE
  2. TRILEPTAL [Suspect]
     Active Substance: OXCARBAZEPINE
     Indication: TRIGEMINAL NEURALGIA
     Dosage: UNK UKN, UNK
     Dates: start: 201402

REACTIONS (5)
  - Death [Fatal]
  - Apathy [Unknown]
  - Mouth haemorrhage [Unknown]
  - Asphyxia [Unknown]
  - Contusion [Unknown]

NARRATIVE: CASE EVENT DATE: 2014
